FAERS Safety Report 18014141 (Version 1)
Quarter: 2020Q3

REPORT INFORMATION
  Report Type: Spontaneous
  Country: US (occurrence: US)
  Receive Date: 20200713
  Receipt Date: 20200713
  Transmission Date: 20201103
  Serious: No
  Sender: FDA-Public Use
  Company Number: US-BAYER-2020-138179

PATIENT
  Age: 58 Year
  Sex: Female

DRUGS (1)
  1. BETASERON [Suspect]
     Active Substance: INTERFERON BETA-1B
     Indication: MULTIPLE SCLEROSIS
     Dosage: 1 ML
     Dates: start: 2000

REACTIONS (5)
  - Dry eye [Not Recovered/Not Resolved]
  - Nasal congestion [None]
  - Oropharyngeal pain [None]
  - Upper-airway cough syndrome [None]
  - Lacrimation increased [None]

NARRATIVE: CASE EVENT DATE: 202005
